FAERS Safety Report 9346933 (Version 1)
Quarter: 2013Q2

REPORT INFORMATION
  Report Type: Spontaneous
  Country: IT (occurrence: IT)
  Receive Date: 20130613
  Receipt Date: 20130613
  Transmission Date: 20140414
  Serious: Yes (Other)
  Sender: FDA-Public Use
  Company Number: IT-ASTRAZENECA-2013SE40678

PATIENT
  Age: 21498 Day
  Sex: Female

DRUGS (2)
  1. TICAGRELOR [Suspect]
     Indication: MYOCARDIAL ISCHAEMIA
     Route: 048
     Dates: start: 20120901, end: 20130517
  2. ASA [Suspect]
     Indication: MYOCARDIAL ISCHAEMIA
     Route: 048
     Dates: start: 20120701, end: 20130517

REACTIONS (3)
  - Gastrointestinal haemorrhage [Recovered/Resolved]
  - Iron deficiency anaemia [Unknown]
  - Large intestinal ulcer haemorrhage [Recovered/Resolved]
